FAERS Safety Report 6862855-0 (Version None)
Quarter: 2010Q3

REPORT INFORMATION
  Report Type: 
  Country: None (occurrence: None)
  Receive Date: 20100721
  Receipt Date: 20100715
  Transmission Date: 20110219
  Serious: Yes (Hospitalization)
  Sender: FDA-Public Use
  Company Number: A0871206A

PATIENT
  Age: 52 Year
  Sex: Female
  Weight: 70.8 kg

DRUGS (13)
  1. LAPATINIB [Suspect]
     Indication: BREAST CANCER
     Dosage: 750MG PER DAY
     Route: 048
     Dates: start: 20100408
  2. DOCETAXEL [Suspect]
     Indication: BREAST CANCER
     Dosage: 75MGM2 EVERY 3 WEEKS
     Route: 042
     Dates: start: 20100408
  3. CARBOPLATIN [Suspect]
     Indication: BREAST CANCER
     Route: 042
     Dates: start: 20100408
  4. LORAZEPAM [Concomitant]
  5. OXYCODONE [Concomitant]
  6. PALONOSETRON [Concomitant]
  7. TRAMADOL [Concomitant]
  8. TYLENOL [Concomitant]
  9. APREPITANT [Concomitant]
  10. COMPAZINE [Concomitant]
  11. DEXAMETHASONE [Concomitant]
  12. HYDROCHLOROTHIAZIDE [Concomitant]
  13. LISINOPRIL [Concomitant]

REACTIONS (4)
  - ABDOMINAL PAIN [None]
  - FATIGUE [None]
  - SYNCOPE [None]
  - VOMITING [None]
